FAERS Safety Report 8844301 (Version 1)
Quarter: 2012Q4

REPORT INFORMATION
  Report Type: Report from Study
  Country: CA (occurrence: CA)
  Receive Date: 20121017
  Receipt Date: 20121017
  Transmission Date: 20130627
  Serious: Yes (Other)
  Sender: FDA-Public Use
  Company Number: CA-JNJFOC-20121005201

PATIENT
  Age: 38 Year
  Sex: Male
  Weight: 58.5 kg

DRUGS (5)
  1. REMICADE [Suspect]
     Indication: CROHN^S DISEASE
     Route: 042
     Dates: start: 2011
  2. FOLIC ACID [Concomitant]
     Route: 065
  3. VITAMIN B12 [Concomitant]
     Dosage: 5 months
     Route: 048
  4. METHOTREXATE [Concomitant]
     Dosage: 5 months
     Route: 048
  5. TYLENOL 3 [Concomitant]
     Route: 048

REACTIONS (3)
  - Mass [Recovering/Resolving]
  - Rash [Recovering/Resolving]
  - Discomfort [Recovering/Resolving]
